FAERS Safety Report 9647378 (Version 1)
Quarter: 2013Q4

REPORT INFORMATION
  Report Type: Spontaneous
  Country: TR (occurrence: TR)
  Receive Date: 20131028
  Receipt Date: 20131028
  Transmission Date: 20140711
  Serious: Yes (Disabling, Other)
  Sender: FDA-Public Use
  Company Number: PHHY2013TR118179

PATIENT
  Age: 46 Year
  Sex: Female

DRUGS (6)
  1. PAROXETINE [Suspect]
  2. QUETIAPINE [Suspect]
  3. ARIPIPRAZOLE [Suspect]
  4. LITHIUM [Suspect]
     Indication: BIPOLAR DISORDER
     Dosage: 900 MG, PER DAY
  5. RISPERIDONE [Suspect]
     Dosage: 25 MG, UNK
  6. ANTIBIOTICS [Concomitant]

REACTIONS (13)
  - Quadriparesis [Unknown]
  - Ataxia [Unknown]
  - Hyporeflexia [Unknown]
  - Speech disorder [Unknown]
  - Mutism [Unknown]
  - Unresponsive to stimuli [Unknown]
  - Peripheral sensory neuropathy [Unknown]
  - Status epilepticus [Recovering/Resolving]
  - Grand mal convulsion [Recovering/Resolving]
  - Myoclonic epilepsy [Unknown]
  - Extrapyramidal disorder [Unknown]
  - Dysarthria [Unknown]
  - Toxicity to various agents [Unknown]
